FAERS Safety Report 14295481 (Version 1)
Quarter: 2017Q4

REPORT INFORMATION
  Report Type: Spontaneous
  Country: US (occurrence: US)
  Receive Date: 20171218
  Receipt Date: 20171218
  Transmission Date: 20180321
  Serious: Yes (Hospitalization, Other)
  Sender: FDA-Public Use
  Company Number: US-AUROBINDO-AUR-APL-2017-44992

PATIENT
  Age: 18 Year
  Sex: Male
  Weight: 57 kg

DRUGS (6)
  1. TACROLIMUS. [Suspect]
     Active Substance: TACROLIMUS
     Indication: PRODUCT USED FOR UNKNOWN INDICATION
     Route: 065
  2. SOTALOL. [Suspect]
     Active Substance: SOTALOL
     Indication: TACHYCARDIA
     Dosage: 15 MG/ML, FOR OVER 15 MINUTES
     Route: 042
  3. ONDANSETRON [Suspect]
     Active Substance: ONDANSETRON
     Indication: PRODUCT USED FOR UNKNOWN INDICATION
     Route: 065
  4. VORICONAZOLE. [Suspect]
     Active Substance: VORICONAZOLE
     Indication: PRODUCT USED FOR UNKNOWN INDICATION
     Route: 065
  5. SOTALOL. [Suspect]
     Active Substance: SOTALOL
     Indication: HAEMODYNAMIC INSTABILITY
  6. CITALOPRAM [Suspect]
     Active Substance: CITALOPRAM HYDROBROMIDE
     Indication: PRODUCT USED FOR UNKNOWN INDICATION
     Route: 065

REACTIONS (20)
  - Arrhythmia supraventricular [Recovered/Resolved]
  - Respiratory failure [Recovered/Resolved]
  - Hypocalcaemia [Recovered/Resolved]
  - Liver function test abnormal [Recovered/Resolved]
  - Venoocclusive disease [Recovered/Resolved]
  - Electrocardiogram QT prolonged [Recovered/Resolved]
  - Pancytopenia [Recovered/Resolved]
  - Hepatic function abnormal [Recovered/Resolved]
  - Atrial flutter [Recovered/Resolved]
  - Acute kidney injury [Recovered/Resolved]
  - Blood alkaline phosphatase increased [Recovered/Resolved]
  - Muscle atrophy [Unknown]
  - Graft versus host disease [Recovered/Resolved]
  - Venoocclusive liver disease [Recovered/Resolved]
  - Atrioventricular block first degree [Recovered/Resolved]
  - Neutropenia [Recovered/Resolved]
  - Hyperglycaemia [Recovered/Resolved]
  - Body surface area decreased [Unknown]
  - Septic shock [Recovered/Resolved]
  - Sinus tachycardia [Recovered/Resolved]
